FAERS Safety Report 8073353-3 (Version None)
Quarter: 2012Q1

REPORT INFORMATION
  Report Type: 
  Country: None (occurrence: None)
  Receive Date: 20120126
  Receipt Date: 20120117
  Transmission Date: 20120608
  Serious: Yes (Hospitalization)
  Sender: FDA-Public Use
  Company Number: US-ACTELION-A-US2011-57921

PATIENT

DRUGS (3)
  1. TRACLEER [Suspect]
     Indication: PULMONARY ARTERIAL HYPERTENSION
     Dosage: UNK
     Route: 048
     Dates: start: 20030918
  2. CALCIUM CHANNEL BLOCKERS [Concomitant]
  3. DIGOXIN [Concomitant]

REACTIONS (3)
  - ASTHENIA [None]
  - CARDIAC PACEMAKER INSERTION [None]
  - FALL [None]
